FAERS Safety Report 11493669 (Version 1)
Quarter: 2015Q3

REPORT INFORMATION
  Report Type: Spontaneous
  Country: US (occurrence: None)
  Receive Date: 20150910
  Receipt Date: 20150910
  Transmission Date: 20151125
  Serious: No
  Sender: FDA-Public Use
  Company Number: None

PATIENT
  Sex: Male

DRUGS (4)
  1. AQUADEKS [Concomitant]
  2. SODIUM CHL [Concomitant]
  3. TOBRAMYCIN 300MG TEVA [Suspect]
     Active Substance: TOBRAMYCIN
     Indication: CYSTIC FIBROSIS
     Dosage: NEO
     Dates: start: 20150730
  4. COLISTIN [Concomitant]
     Active Substance: COLISTIN

REACTIONS (1)
  - Hospitalisation [None]
